FAERS Safety Report 7518674-5 (Version None)
Quarter: 2011Q2

REPORT INFORMATION
  Report Type: 
  Country: None (occurrence: None)
  Receive Date: 20110523
  Receipt Date: 20110509
  Transmission Date: 20111010
  Serious: Yes (Hospitalization)
  Sender: FDA-Public Use
  Company Number: 2011MA005670

PATIENT
  Age: 26 Year
  Sex: Female

DRUGS (5)
  1. ARIPIPRAZOLE [Concomitant]
  2. BIPERIDEN HYDROCHLORIDE TAB [Concomitant]
  3. LORAZEPAM [Suspect]
     Indication: PSYCHOTIC DISORDER
     Dosage: 1.5 MG; OD; PO
     Route: 048
     Dates: start: 20080801
  4. QUETIAPINE [Concomitant]
  5. CLOZAPINE [Concomitant]

REACTIONS (3)
  - DYSPNOEA [None]
  - MYASTHENIA GRAVIS [None]
  - RESPIRATORY FAILURE [None]
